FAERS Safety Report 15881369 (Version 3)
Quarter: 2019Q1

REPORT INFORMATION
  Report Type: Spontaneous
  Country: AU (occurrence: AU)
  Receive Date: 20190128
  Receipt Date: 20190212
  Transmission Date: 20190417
  Serious: Yes (Hospitalization, Other)
  Sender: FDA-Public Use
  Company Number: AU-SAKK-2019SA022552AA

PATIENT
  Age: 24 Year
  Sex: Female
  Weight: 60 kg

DRUGS (7)
  1. METHOTREXATE. [Concomitant]
     Active Substance: METHOTREXATE
  2. TRALOKINUMAB. [Concomitant]
     Active Substance: TRALOKINUMAB
  3. DUPIXENT [Suspect]
     Active Substance: DUPILUMAB
     Indication: DERMATITIS ATOPIC
     Dosage: 300 MG, QW
     Route: 058
     Dates: start: 20181022, end: 201901
  4. PREDNISOLONE. [Concomitant]
     Active Substance: PREDNISOLONE
     Route: 048
  5. MYCOPHENOLATE [Concomitant]
     Active Substance: MYCOPHENOLIC ACID
  6. IMURAN [Concomitant]
     Active Substance: AZATHIOPRINE
  7. CYCLOSPORINE. [Concomitant]
     Active Substance: CYCLOSPORINE

REACTIONS (2)
  - Squamous cell carcinoma [Not Recovered/Not Resolved]
  - Metastasis [Unknown]

NARRATIVE: CASE EVENT DATE: 20181201
